FAERS Safety Report 8465630-9 (Version None)
Quarter: 2012Q2

REPORT INFORMATION
  Report Type: 
  Country: None (occurrence: None)
  Receive Date: 20120626
  Receipt Date: 20120619
  Transmission Date: 20120825
  Serious: Yes (Hospitalization)
  Sender: FDA-Public Use
  Company Number: US-BAYER-2012-062493

PATIENT
  Age: 25 Year
  Sex: Female
  Weight: 73.6 kg

DRUGS (9)
  1. CLINDAMYCIN [Concomitant]
     Dosage: 300 MG, UNK
  2. YAZ [Suspect]
     Indication: ENDOMETRIOSIS
  3. MS CONTIN [Concomitant]
     Dosage: UNK
     Dates: start: 20080701
  4. MORPHINE SULFATE [Concomitant]
     Dosage: 15 MG, UNK
  5. ETODOLAC SA [Concomitant]
     Dosage: 500 MG, UNK
  6. MORPHINE [Concomitant]
     Dosage: UNK
     Route: 048
     Dates: start: 20080701
  7. TRAMADOL HCL [Concomitant]
     Dosage: 500 MG, UNK
     Dates: start: 20080701
  8. NAPROXEN [Concomitant]
     Dosage: 500 MG, UNK
     Dates: start: 20080701
  9. CLOTRIMAZOLE [Concomitant]
     Dosage: 10 MG, TROCHE

REACTIONS (1)
  - DEEP VEIN THROMBOSIS [None]
